FAERS Safety Report 15576345 (Version 1)
Quarter: 2018Q4

REPORT INFORMATION
  Report Type: Spontaneous
  Country: US (occurrence: US)
  Receive Date: 20181101
  Receipt Date: 20181101
  Transmission Date: 20190205
  Serious: Yes (Other)
  Sender: FDA-Public Use
  Company Number: PHEH2018US045475

PATIENT
  Sex: Male

DRUGS (3)
  1. BRIMONIDINE [Concomitant]
     Active Substance: BRIMONIDINE TARTRATE
     Indication: PRODUCT USED FOR UNKNOWN INDICATION
     Route: 065
  2. TRAVATAN Z [Suspect]
     Active Substance: TRAVOPROST
     Indication: PRODUCT USED FOR UNKNOWN INDICATION
     Dosage: 1 GTT, QD
     Route: 047
  3. LUPRON [Concomitant]
     Active Substance: LEUPROLIDE ACETATE
     Indication: PROSTATIC DISORDER
     Dosage: UNK UNK, Q5W
     Route: 065

REACTIONS (2)
  - Vein rupture [Unknown]
  - Visual impairment [Unknown]
